FAERS Safety Report 21087690 (Version 1)
Quarter: 2022Q3

REPORT INFORMATION
  Report Type: Other
  Country: CZ (occurrence: CZ)
  Receive Date: 20220715
  Receipt Date: 20220715
  Transmission Date: 20221027
  Serious: Yes (Other)
  Sender: FDA-Public Use
  Company Number: CZ-TEVA-2022-CZ-2048582

PATIENT
  Age: 44 Year
  Sex: Male

DRUGS (4)
  1. BEVACIZUMAB [Suspect]
     Active Substance: BEVACIZUMAB
     Indication: Adenocarcinoma of colon
     Dosage: 40 CYCLES OF THE FOLFIRI
     Route: 065
     Dates: start: 201201, end: 201403
  2. LEUCOVORIN [Suspect]
     Active Substance: LEUCOVORIN
     Indication: Adenocarcinoma of colon
     Dosage: 40 CYCLES OF THE FOLFIRI
     Route: 065
     Dates: start: 201201, end: 201403
  3. FLUOROURACIL [Suspect]
     Active Substance: FLUOROURACIL
     Indication: Adenocarcinoma of colon
     Dosage: 40 CYCLES OF THE FOLFIRI
     Route: 065
     Dates: start: 201201, end: 201403
  4. IRINOTECAN [Suspect]
     Active Substance: IRINOTECAN
     Indication: Adenocarcinoma of colon
     Dosage: 40 CYCLES OF THE FOLFIRI
     Route: 065
     Dates: start: 201201, end: 201403

REACTIONS (2)
  - Haematotoxicity [Unknown]
  - Diarrhoea [Unknown]

NARRATIVE: CASE EVENT DATE: 20120101
